FAERS Safety Report 10026062 (Version 2)
Quarter: 2014Q2

REPORT INFORMATION
  Report Type: Spontaneous
  Country: US (occurrence: US)
  Receive Date: 20140320
  Receipt Date: 20140404
  Transmission Date: 20141212
  Serious: No
  Sender: FDA-Public Use
  Company Number: US-GILEAD-2014-0097213

PATIENT
  Sex: Female

DRUGS (5)
  1. LETAIRIS [Suspect]
     Indication: PULMONARY HYPERTENSION
     Dosage: 5 MG, QD
     Route: 048
     Dates: start: 20090202
  2. LETAIRIS [Suspect]
     Indication: CONGENITAL PULMONARY ARTERY ANOMALY
  3. VELETRI [Concomitant]
  4. REVATIO [Concomitant]
  5. COUMADIN                           /00014802/ [Concomitant]

REACTIONS (2)
  - Catheter site erythema [Unknown]
  - Catheter site pain [Unknown]
